FAERS Safety Report 7640622 (Version 6)
Quarter: 2016Q2

REPORT INFORMATION
  Report Type: Report from Study
  Country: DE (occurrence: DE)
  Receive Date: 20101026
  Receipt Date: 20160511
  Transmission Date: 20160815
  Serious: Yes (Life-Threatening, Hospitalization)
  Sender: FDA-Public Use
  Company Number: PHHO2010DE16120

PATIENT
  Age: 75 Year
  Sex: Male
  Weight: 94 kg

DRUGS (8)
  1. COMPARATOR ENALAPRIL [Suspect]
     Active Substance: ENALAPRIL
     Indication: CARDIAC FAILURE
     Dosage: RUN IN PHASE
     Route: 048
     Dates: start: 20100115, end: 20100408
  2. NEBIVOLOL. [Concomitant]
     Active Substance: NEBIVOLOL
  3. ALISKIREN [Suspect]
     Active Substance: ALISKIREN
     Dosage: RUN IN PHASE
     Route: 048
     Dates: start: 20100310, end: 20100408
  4. LOCOL [Concomitant]
     Active Substance: FLUVASTATIN SODIUM
     Indication: HYPERCHOLESTEROLAEMIA
  5. ALISKIREN [Suspect]
     Active Substance: ALISKIREN
     Dosage: 300 MG, UNK
     Route: 048
     Dates: start: 20100408, end: 20101013
  6. TORASEMIDE [Concomitant]
     Active Substance: TORSEMIDE
     Indication: CARDIAC FAILURE
  7. FALITHROM [Concomitant]
     Active Substance: PHENPROCOUMON
  8. DIGITOXIN [Concomitant]
     Active Substance: DIGITOXIN
     Indication: CARDIAC FAILURE

REACTIONS (4)
  - Drug ineffective [Recovering/Resolving]
  - Pulmonary oedema [Recovering/Resolving]
  - Dyspnoea at rest [Recovering/Resolving]
  - Cardiac failure [Recovering/Resolving]

NARRATIVE: CASE EVENT DATE: 20101013
